FAERS Safety Report 11350195 (Version 2)
Quarter: 2015Q3

REPORT INFORMATION
  Report Type: Spontaneous
  Country: JP (occurrence: JP)
  Receive Date: 20150807
  Receipt Date: 20150811
  Transmission Date: 20151125
  Serious: Yes (Other)
  Sender: FDA-Public Use
  Company Number: JP-TEVA-2015-JP-001399J

PATIENT
  Age: 54 Year
  Sex: Female

DRUGS (2)
  1. BISOPROLOL FUMARATE TABLET 0.625MG ^TEVA^ [Suspect]
     Active Substance: BISOPROLOL FUMARATE
     Indication: HYPERTENSION
     Dosage: .625 MILLIGRAM DAILY;
     Route: 048
     Dates: start: 20150725
  2. ASPIRIN. [Concomitant]
     Active Substance: ASPIRIN
     Route: 048

REACTIONS (2)
  - Internal haemorrhage [Unknown]
  - Product substitution issue [Unknown]
